FAERS Safety Report 24659050 (Version 1)
Quarter: 2024Q4

REPORT INFORMATION
  Report Type: Spontaneous
  Country: DE (occurrence: DE)
  Receive Date: 20241125
  Receipt Date: 20241125
  Transmission Date: 20250115
  Serious: Yes (Other)
  Sender: ROCHE
  Company Number: DE-002147023-PHHY2014DE139436

PATIENT
  Age: 72 Year
  Sex: Female

DRUGS (8)
  1. LUCENTIS [Suspect]
     Active Substance: RANIBIZUMAB
     Indication: Age-related macular degeneration
     Dosage: 0.05 ML, UNK
     Route: 050
     Dates: start: 20140425
  2. LUCENTIS [Suspect]
     Active Substance: RANIBIZUMAB
     Dosage: 0.05 ML, UNK
     Route: 050
     Dates: start: 20140528
  3. LUCENTIS [Suspect]
     Active Substance: RANIBIZUMAB
     Dosage: 0.05 ML, UNK
     Route: 050
     Dates: start: 20140701
  4. LUCENTIS [Suspect]
     Active Substance: RANIBIZUMAB
     Dosage: 0.05 ML, UNK (RIGHT EYE)
     Route: 050
     Dates: start: 20140909
  5. LUCENTIS [Suspect]
     Active Substance: RANIBIZUMAB
     Dosage: 0.05 ML, UNK (RIGHT EYE)
     Route: 050
     Dates: start: 20140424
  6. LUCENTIS [Suspect]
     Active Substance: RANIBIZUMAB
     Dosage: 0.05 ML, UNK (RIGHT EYE)
     Route: 050
     Dates: start: 20140528
  7. LUCENTIS [Suspect]
     Active Substance: RANIBIZUMAB
     Dosage: 0.05 ML, UNK (RIGHT EYE)
     Route: 050
     Dates: start: 20140701
  8. LUCENTIS [Suspect]
     Active Substance: RANIBIZUMAB
     Dosage: 0.05 ML, UNK (RIGHT EYE)
     Route: 050
     Dates: start: 20141015

REACTIONS (17)
  - Toxic anterior segment syndrome [Unknown]
  - Endophthalmitis [Recovering/Resolving]
  - Hypopyon [Unknown]
  - Eye inflammation [Unknown]
  - Fibrin abnormal [Unknown]
  - Visual impairment [Unknown]
  - Vitreous opacities [Unknown]
  - Retinal exudates [Unknown]
  - Anterior chamber cell [Unknown]
  - Eye inflammation [Unknown]
  - Uveitis [Unknown]
  - Anterior chamber disorder [Unknown]
  - Streptococcus test positive [Unknown]
  - Retinal oedema [Unknown]
  - Multiple use of single-use product [Unknown]
  - Vitritis [Unknown]
  - Iridocyclitis [Unknown]

NARRATIVE: CASE EVENT DATE: 20140909
